FAERS Safety Report 4506401-5 (Version None)
Quarter: 2004Q4

REPORT INFORMATION
  Report Type: 
  Country: None (occurrence: None)
  Receive Date: 20041025
  Receipt Date: 20040315
  Transmission Date: 20050328
  Serious: Yes (Hospitalization, Other)
  Sender: FDA-Public Use
  Company Number: US-JNJFOC-20040200100

PATIENT
  Age: 70 Year
  Sex: Male
  Weight: 79.3795 kg

DRUGS (14)
  1. REMICADE [Suspect]
     Indication: RHEUMATOID ARTHRITIS
     Dosage: 400 MG
     Dates: start: 20040106
  2. CELEBREX [Suspect]
     Indication: RHEUMATOID ARTHRITIS
     Dosage: 200 MG 1 IN 2 DAY
  3. ACETYLSALICYLIC ACID SRT [Suspect]
     Indication: CORONARY ARTERY DISEASE
     Dosage: 81 MG 1 IN 1 DAY
  4. METHOTREXATE SODIUM [Concomitant]
  5. PREDNISONE [Concomitant]
  6. GLUCOSAMINE (GLUCOSAMINE) [Concomitant]
  7. NEXIUM [Concomitant]
  8. FOLIC ACID [Concomitant]
  9. FLONASE [Concomitant]
  10. COREG [Concomitant]
  11. LIPITOR [Concomitant]
  12. CENTRUM SILVER (CENTRUM SILVER) [Concomitant]
  13. MSM (METHYLSULFONAL) [Concomitant]
  14. ADVAIR (SERETIDE MITE) [Concomitant]

REACTIONS (1)
  - GASTROINTESTINAL HAEMORRHAGE [None]
